FAERS Safety Report 24105167 (Version 1)
Quarter: 2024Q3

REPORT INFORMATION
  Report Type: Spontaneous
  Country: DE (occurrence: DE)
  Receive Date: 20240717
  Receipt Date: 20240717
  Transmission Date: 20241017
  Serious: Yes (Life-Threatening, Hospitalization)
  Sender: MYLAN
  Company Number: DE-MYLANLABS-2024M1065832

PATIENT
  Age: 66 Year
  Sex: Female

DRUGS (10)
  1. EPINEPHRINE [Suspect]
     Active Substance: EPINEPHRINE
     Indication: Cardiac arrest
     Dosage: 10 MILLIGRAM, VIA THE VENOUS CATHETER PORT SYSTEM; RECEIVED OVERDOSE 10MG IN 10ML SYRINGE
     Route: 042
  2. PACLITAXEL [Concomitant]
     Active Substance: PACLITAXEL
     Indication: Uterine cancer
     Dosage: UNK, SECOND DOSE OF PACLITAXEL VIA A VENOUS PORT CATHETER SYSTEM AFTER AN INITIAL DOSE WAS ADMINISTE
     Route: 042
  3. DEXAMETHASONE [Concomitant]
     Active Substance: DEXAMETHASONE
     Indication: Anaphylaxis prophylaxis
     Dosage: 20 MILLIGRAM
     Route: 048
  4. RANITIDINE [Concomitant]
     Active Substance: RANITIDINE
     Indication: Anaphylaxis prophylaxis
     Dosage: 150 MILLIGRAM
     Route: 048
  5. CLEMASTINE FUMARATE [Concomitant]
     Active Substance: CLEMASTINE FUMARATE
     Indication: Anaphylaxis prophylaxis
     Dosage: 2 MILLIGRAM, VIA THE PORT CATHETER SYSTEM
     Route: 042
  6. CLEMASTINE FUMARATE [Concomitant]
     Active Substance: CLEMASTINE FUMARATE
     Indication: Anaphylactic reaction
  7. DEXAMETHASONE [Concomitant]
     Active Substance: DEXAMETHASONE
     Indication: Anaphylactic reaction
     Dosage: 20 MILLIGRAM, VIA THE PORT CATHETER SYSTEM
     Route: 042
  8. MIDAZOLAM [Concomitant]
     Active Substance: MIDAZOLAM
     Indication: Coma scale abnormal
     Dosage: 10 MILLIGRAM
     Route: 065
  9. MORPHINE [Concomitant]
     Active Substance: MORPHINE
     Indication: Coma scale abnormal
     Dosage: 10 MILLIGRAM
     Route: 065
  10. ETOMIDATE [Concomitant]
     Active Substance: ETOMIDATE
     Indication: Coma scale abnormal
     Dosage: 20 MILLIGRAM
     Route: 065

REACTIONS (4)
  - Ventricular tachycardia [Recovering/Resolving]
  - Accidental overdose [Recovering/Resolving]
  - Product dispensing error [Unknown]
  - Ventricular fibrillation [Recovering/Resolving]
